FAERS Safety Report 6382945-9 (Version None)
Quarter: 2009Q3

REPORT INFORMATION
  Report Type: 
  Country: None (occurrence: None)
  Receive Date: 20090930
  Receipt Date: 20090916
  Transmission Date: 20100115
  Serious: Yes (Other)
  Sender: FDA-Public Use
  Company Number: DE-PFIZER INC-2009269757

PATIENT
  Age: 95 Year

DRUGS (1)
  1. LYRICA [Suspect]
     Dosage: 50 MG, UNK
     Route: 048

REACTIONS (4)
  - FALL [None]
  - INCORRECT DOSE ADMINISTERED [None]
  - MONOPLEGIA [None]
  - URINARY HESITATION [None]
